FAERS Safety Report 9173722 (Version 1)
Quarter: 2013Q1

REPORT INFORMATION
  Report Type: Spontaneous
  Country: US (occurrence: None)
  Receive Date: 20130318
  Receipt Date: 20130318
  Transmission Date: 20140127
  Serious: Yes (Hospitalization)
  Sender: FDA-Public Use
  Company Number: None

PATIENT
  Age: 55 Year
  Sex: Female
  Weight: 83.01 kg

DRUGS (1)
  1. ZOCOR [Suspect]
     Indication: TYPE 2 DIABETES MELLITUS
     Route: 048
     Dates: start: 20100901, end: 20121025

REACTIONS (6)
  - Pain [None]
  - Asthenia [None]
  - Abasia [None]
  - Muscle disorder [None]
  - Anger [None]
  - Myalgia [None]
